FAERS Safety Report 7895567-5 (Version None)
Quarter: 2011Q4

REPORT INFORMATION
  Report Type: 
  Country: None (occurrence: None)
  Receive Date: 20111106
  Receipt Date: 20110829
  Transmission Date: 20120403
  Serious: No
  Sender: FDA-Public Use
  Company Number: US-AMGEN-USASP2011044003

PATIENT
  Sex: Female

DRUGS (3)
  1. METHOTREXATE [Concomitant]
     Dosage: 6 MG, QWK
     Dates: start: 20110101
  2. MELOXICAM [Concomitant]
     Dosage: 1 MG, BID
     Dates: start: 20110101
  3. ENBREL [Suspect]
     Indication: RHEUMATOID ARTHRITIS
     Dosage: 50 MG, QWK
     Dates: start: 20110301

REACTIONS (1)
  - INJECTION SITE PRURITUS [None]
